FAERS Safety Report 10584825 (Version 1)
Quarter: 2014Q4

REPORT INFORMATION
  Report Type: Spontaneous
  Country: US (occurrence: None)
  Receive Date: 20141113
  Receipt Date: 20141113
  Transmission Date: 20150529
  Serious: Yes (Hospitalization)
  Sender: FDA-Public Use
  Company Number: COR_00146_2014

PATIENT
  Age: 34 Year
  Sex: Female

DRUGS (3)
  1. DOCETAXEL. [Concomitant]
     Active Substance: DOCETAXEL
  2. TRASTUZUMAB [Concomitant]
     Active Substance: TRASTUZUMAB
  3. CARBOPLATIN. [Suspect]
     Active Substance: CARBOPLATIN
     Indication: BREAST CANCER
     Dosage: DF

REACTIONS (2)
  - Suprapubic pain [None]
  - Haematuria [None]
